FAERS Safety Report 5474379-6 (Version None)
Quarter: 2007Q3

REPORT INFORMATION
  Report Type: 
  Country: None (occurrence: None)
  Receive Date: 20070928
  Receipt Date: 20070928
  Transmission Date: 20080115
  Serious: No
  Sender: FDA-Public Use
  Company Number: None

PATIENT
  Age: 64 Year
  Sex: Male

DRUGS (5)
  1. NEURONTIN [Suspect]
     Dosage: 100 MG BID
     Dates: start: 20040614, end: 20040706
  2. DIGOXIN [Concomitant]
  3. INDERAL [Concomitant]
  4. PRIMIDONE [Concomitant]
  5. ASPIRIN [Concomitant]

REACTIONS (2)
  - CHOLESTASIS [None]
  - LIVER INJURY [None]
